FAERS Safety Report 13835077 (Version 1)
Quarter: 2017Q3

REPORT INFORMATION
  Report Type: Report from Study
  Country: US (occurrence: US)
  Receive Date: 20170804
  Receipt Date: 20170804
  Transmission Date: 20171127
  Serious: Yes (Hospitalization, Other)
  Sender: FDA-Public Use
  Company Number: US-GILEAD-2017-0281366

PATIENT
  Age: 63 Year
  Sex: Female
  Weight: 65.31 kg

DRUGS (2)
  1. IDELALISIB [Suspect]
     Active Substance: IDELALISIB
     Indication: NON-HODGKIN^S LYMPHOMA
     Dosage: 100 MG, BID
     Route: 048
     Dates: start: 20170512
  2. IDELALISIB [Suspect]
     Active Substance: IDELALISIB
     Dosage: 100 MG, QD
     Route: 048
     Dates: start: 20170727

REACTIONS (6)
  - Asthenia [Recovered/Resolved]
  - Cough [Recovered/Resolved]
  - Dehydration [Unknown]
  - Pneumonia [Recovered/Resolved]
  - Pleural effusion [Unknown]
  - Back pain [Unknown]

NARRATIVE: CASE EVENT DATE: 20170703
